FAERS Safety Report 25306528 (Version 2)
Quarter: 2025Q2

REPORT INFORMATION
  Report Type: Report from Study
  Country: US (occurrence: US)
  Receive Date: 20250513
  Receipt Date: 20250522
  Transmission Date: 20250717
  Serious: Yes (Other)
  Sender: TEVA
  Company Number: US-TEVA-VS-3329561

PATIENT

DRUGS (2)
  1. DEXAMETHASONE [Suspect]
     Active Substance: DEXAMETHASONE
     Indication: Mitral valve incompetence
     Route: 064
  2. PLAQUENIL [Suspect]
     Active Substance: HYDROXYCHLOROQUINE SULFATE
     Indication: Prophylaxis
     Dosage: BEFORE 10 GESTATIONAL WEEKS
     Route: 064

REACTIONS (3)
  - Drug ineffective [Unknown]
  - Foetal exposure during pregnancy [Unknown]
  - Rebound effect [Unknown]
